FAERS Safety Report 24298699 (Version 1)
Quarter: 2024Q3

REPORT INFORMATION
  Report Type: Spontaneous
  Country: US (occurrence: None)
  Receive Date: 20240906
  Receipt Date: 20240906
  Transmission Date: 20241017
  Serious: Yes (Hospitalization)
  Sender: Public
  Company Number: None

PATIENT
  Age: 46 Year
  Sex: Female
  Weight: 73 kg

DRUGS (1)
  1. RINVOQ [Suspect]
     Active Substance: UPADACITINIB
     Indication: Colitis ulcerative
     Dosage: FREQUENCY : DAILY;?
     Route: 048
     Dates: start: 20240704

REACTIONS (6)
  - Deep vein thrombosis [None]
  - Cerebrovascular accident [None]
  - Speech disorder [None]
  - Venous occlusion [None]
  - Colitis ulcerative [None]
  - Therapy change [None]

NARRATIVE: CASE EVENT DATE: 20240820
